FAERS Safety Report 16317272 (Version 2)
Quarter: 2019Q2

REPORT INFORMATION
  Report Type: Spontaneous
  Country: DE (occurrence: DE)
  Receive Date: 20190515
  Receipt Date: 20190517
  Transmission Date: 20190711
  Serious: Yes (Death)
  Sender: FDA-Public Use
  Company Number: DE-TEVA-2019-DE-1049138

PATIENT
  Age: 82 Year
  Sex: Female
  Weight: 80 kg

DRUGS (8)
  1. RAMIPRIL. [Concomitant]
     Active Substance: RAMIPRIL
     Indication: HYPERTONIA
     Route: 048
  2. METAMIZOL [Suspect]
     Active Substance: METAMIZOLE SODIUM
     Indication: FRACTURE PAIN
     Dosage: 120 GTT DAILY;
     Route: 048
  3. METOPROLOL. [Concomitant]
     Active Substance: METOPROLOL
     Indication: HYPERTONIA
     Dosage: 50 MILLIGRAM DAILY;
     Route: 048
  4. FOLSAEURE [Concomitant]
     Active Substance: FOLIC ACID
     Route: 048
  5. AMLODIPIN [Concomitant]
     Active Substance: AMLODIPINE BESYLATE
     Indication: HYPERTONIA
     Route: 048
  6. DEKRISTOL [Concomitant]
     Active Substance: CHOLECALCIFEROL
     Indication: OSTEOPOROSIS
     Route: 030
  7. ASPIRIN. [Concomitant]
     Active Substance: ASPIRIN
     Route: 030
  8. MTX [Suspect]
     Active Substance: METHOTREXATE SODIUM
     Indication: PSORIATIC ARTHROPATHY
     Dosage: 10 MILLIGRAM DAILY;
     Route: 048

REACTIONS (1)
  - Pancytopenia [Fatal]

NARRATIVE: CASE EVENT DATE: 20190410
